FAERS Safety Report 5381805-X (Version None)
Quarter: 2007Q3

REPORT INFORMATION
  Report Type: 
  Country: None (occurrence: None)
  Receive Date: 20070705
  Receipt Date: 20070705
  Transmission Date: 20080115
  Serious: Yes (Life-Threatening)
  Sender: FDA-Public Use
  Company Number: None

PATIENT
  Age: 57 Year
  Sex: Female
  Weight: 127.9144 kg

DRUGS (2)
  1. LEVOQUIN 250MG ORTHO-MCNEIL [Suspect]
     Indication: PYELONEPHRITIS
     Dosage: 250MG  Q DAY X 5 DOSES  PO
     Route: 048
     Dates: start: 20070625, end: 20070629
  2. LEVOQUIN 250MG ORTHO-MCNEIL [Suspect]
     Indication: SEPTIC SHOCK
     Dosage: 250MG  Q DAY X 5 DOSES  PO
     Route: 048
     Dates: start: 20070625, end: 20070629

REACTIONS (1)
  - HYPOGLYCAEMIA [None]
